FAERS Safety Report 9415265 (Version 1)
Quarter: 2013Q3

REPORT INFORMATION
  Report Type: Spontaneous
  Country: AU (occurrence: AU)
  Receive Date: 20130723
  Receipt Date: 20130723
  Transmission Date: 20140515
  Serious: Yes (Other)
  Sender: FDA-Public Use
  Company Number: AU-ROCHE-1250865

PATIENT
  Age: 20 Year
  Sex: Male

DRUGS (2)
  1. ROACCUTANE [Suspect]
     Indication: PRODUCT USED FOR UNKNOWN INDICATION
     Route: 048
     Dates: start: 20130529, end: 20130531
  2. DOXYCYCLINE HYDROCHLORIDE [Concomitant]

REACTIONS (5)
  - Malaise [Recovering/Resolving]
  - Arthralgia [Recovering/Resolving]
  - Face oedema [Recovering/Resolving]
  - Eye swelling [Recovering/Resolving]
  - Rash erythematous [Recovering/Resolving]
